FAERS Safety Report 5854132-1 (Version None)
Quarter: 2008Q3

REPORT INFORMATION
  Report Type: 
  Country: None (occurrence: None)
  Receive Date: 20080822
  Receipt Date: 20080811
  Transmission Date: 20090109
  Serious: Yes (Death)
  Sender: FDA-Public Use
  Company Number: US-SANOFI-SYNTHELABO-A03200803029

PATIENT
  Age: 45 Year
  Sex: Female

DRUGS (7)
  1. PLAVIX [Suspect]
     Indication: CATHETERISATION CARDIAC
     Dosage: UNK
     Route: 048
  2. PLAVIX [Suspect]
     Indication: ANGIOPLASTY
     Dosage: UNK
     Route: 048
  3. ANGIOMAX [Suspect]
     Indication: ANGIOPLASTY
     Dosage: UNK
     Route: 065
  4. ANGIOMAX [Suspect]
     Indication: CATHETERISATION CARDIAC
     Dosage: UNK
     Route: 065
  5. ASPIRIN [Suspect]
     Indication: CATHETERISATION CARDIAC
     Dosage: UNK
     Route: 065
  6. ASPIRIN [Suspect]
     Indication: ANGIOPLASTY
     Dosage: UNK
     Route: 065
  7. EPINEPHRINE [Suspect]
     Indication: CIRCULATORY COLLAPSE
     Route: 040

REACTIONS (3)
  - DEPRESSED LEVEL OF CONSCIOUSNESS [None]
  - HAEMORRHAGIC STROKE [None]
  - HYPERTENSION [None]
